FAERS Safety Report 9837363 (Version 1)
Quarter: 2014Q1

REPORT INFORMATION
  Report Type: Spontaneous
  Country: US (occurrence: None)
  Receive Date: 20140117
  Receipt Date: 20140117
  Transmission Date: 20141002
  Serious: Yes (Other)
  Sender: FDA-Public Use
  Company Number: None

PATIENT
  Age: 52 Year
  Sex: Male
  Weight: 106.14 kg

DRUGS (1)
  1. FLUOXITINIE [Suspect]
     Indication: DEPRESSION
     Dosage: 1  ONCE DAILY  TAKEN BY MOUTH
     Route: 048

REACTIONS (3)
  - Product odour abnormal [None]
  - Drug ineffective [None]
  - Product quality issue [None]
